FAERS Safety Report 8666677 (Version 2)
Quarter: 2012Q4

REPORT INFORMATION
  Report Type: 
  Country: US (occurrence: US)
  Receive Date: 20120716
  Receipt Date: 20121011
  Transmission Date: 20130627
  Serious: Yes (Other)
  Sender: FDA-Public Use
  Company Number: US-ASTRAZENECA-2012SE45646

PATIENT
  Age: 54 Year
  Sex: Female
  Weight: 49.9 kg

DRUGS (8)
  1. SEROQUEL [Suspect]
     Indication: DEPRESSION
     Route: 048
  2. SEROQUEL [Suspect]
     Indication: DEPRESSION
     Route: 048
     Dates: start: 20100304
  3. PAIN [Suspect]
     Indication: BACK PAIN
     Route: 065
  4. SOMA [Suspect]
     Route: 065
  5. PRISTIQ [Concomitant]
  6. TOPAMAX [Concomitant]
  7. LIBRIUM [Concomitant]
  8. TEN MEDICATIONS [Concomitant]

REACTIONS (7)
  - Intervertebral disc protrusion [Unknown]
  - Fall [Unknown]
  - Back injury [Unknown]
  - Memory impairment [Unknown]
  - Migraine [Unknown]
  - Nausea [Unknown]
  - Pain in extremity [Unknown]
